FAERS Safety Report 9863866 (Version 1)
Quarter: 2014Q1

REPORT INFORMATION
  Report Type: Spontaneous
  Country: FR (occurrence: FR)
  Receive Date: 20140203
  Receipt Date: 20140203
  Transmission Date: 20141002
  Serious: Yes (Other)
  Sender: FDA-Public Use
  Company Number: FR-ACTAVIS-2014-01284

PATIENT
  Age: 74 Year
  Sex: Male
  Weight: 56 kg

DRUGS (4)
  1. GEMCITABINE ACTAVIS [Suspect]
     Indication: ADENOCARCINOMA PANCREAS
     Dosage: 1000 MG/M2, CYCLICAL
     Route: 042
     Dates: start: 20130912, end: 20131121
  2. DILTIAZEM [Concomitant]
     Indication: HYPERTENSION
     Dosage: UNK
     Route: 065
  3. PRAVASTATINE [Concomitant]
     Indication: HYPERCHOLESTEROLAEMIA
     Dosage: UNK
     Route: 065
  4. CLOPIDOGREL [Concomitant]
     Indication: PERIPHERAL ARTERIAL OCCLUSIVE DISEASE
     Dosage: UNK
     Route: 065

REACTIONS (4)
  - Pericarditis [Not Recovered/Not Resolved]
  - Anaemia [Recovered/Resolved]
  - Neutropenia [Recovered/Resolved]
  - Pleurisy [Not Recovered/Not Resolved]
